FAERS Safety Report 11101386 (Version 2)
Quarter: 2015Q4

REPORT INFORMATION
  Report Type: Spontaneous
  Country: US (occurrence: US)
  Receive Date: 20150508
  Receipt Date: 20151201
  Transmission Date: 20160304
  Serious: Yes (Hospitalization, Other)
  Sender: FDA-Public Use
  Company Number: US-PFIZER INC-2015155592

PATIENT
  Age: 47 Year
  Sex: Female
  Weight: 72.57 kg

DRUGS (8)
  1. SKELAXIN [Suspect]
     Active Substance: METAXALONE
     Indication: SCOLIOSIS
     Dosage: UNK, ONE TABLET THREE TIMES A DAY
  2. PLAVIX [Concomitant]
     Active Substance: CLOPIDOGREL BISULFATE
     Dosage: UNK
  3. LYRICA [Suspect]
     Active Substance: PREGABALIN
     Indication: PERIPHERAL NERVE INJURY
     Dosage: 200 MG, 3X/DAY
  4. SKELAXIN [Suspect]
     Active Substance: METAXALONE
     Indication: INTERVERTEBRAL DISC PROTRUSION
     Dosage: UNK
  5. LYRICA [Suspect]
     Active Substance: PREGABALIN
     Indication: NERVE INJURY
     Dosage: 50 MG, UNK (ONCE OR TWICE A DAY FOR STARTERS)
  6. SKELAXIN [Suspect]
     Active Substance: METAXALONE
     Indication: FIBROMYALGIA
  7. SKELAXIN [Suspect]
     Active Substance: METAXALONE
     Indication: ARTHRITIS
  8. SKELAXIN [Suspect]
     Active Substance: METAXALONE
     Indication: OSTEOARTHRITIS

REACTIONS (9)
  - Hypoaesthesia [Not Recovered/Not Resolved]
  - Gangrene [Unknown]
  - Circulatory collapse [Recovering/Resolving]
  - Gait disturbance [Recovering/Resolving]
  - Laryngitis [Unknown]
  - Thrombosis [Unknown]
  - Drug ineffective [Not Recovered/Not Resolved]
  - Ischaemic limb pain [Not Recovered/Not Resolved]
  - Pain [Not Recovered/Not Resolved]

NARRATIVE: CASE EVENT DATE: 201502
